FAERS Safety Report 23637376 (Version 1)
Quarter: 2024Q1

REPORT INFORMATION
  Report Type: Spontaneous
  Country: US (occurrence: US)
  Receive Date: 20240315
  Receipt Date: 20240315
  Transmission Date: 20240410
  Serious: No
  Sender: FDA-Public Use
  Company Number: US-ARBOR PHARMACEUTICALS, LLC-US-2023ARB004697

PATIENT
  Age: 15 Year
  Sex: Female

DRUGS (1)
  1. ERY-PED [Suspect]
     Active Substance: ERYTHROMYCIN ETHYLSUCCINATE
     Indication: Impaired gastric emptying
     Dosage: EVERY SINGLE DAY

REACTIONS (2)
  - Off label use [Unknown]
  - Product availability issue [Unknown]
